FAERS Safety Report 25121480 (Version 2)
Quarter: 2025Q4

REPORT INFORMATION
  Report Type: Spontaneous
  Country: US (occurrence: US)
  Receive Date: 20250326
  Receipt Date: 20251113
  Transmission Date: 20260117
  Serious: Yes (Hospitalization, Other)
  Sender: CSL BEHRING
  Company Number: US-BEH-2025199709

PATIENT
  Age: 33 Year
  Sex: Male

DRUGS (10)
  1. AFSTYLA ANTIHEMOPHILIC FACTOR (RECOMBINANT), SINGLE CHAIN [Suspect]
     Active Substance: LONOCTOCOG ALFA
     Indication: Factor VIII deficiency
     Dosage: 5200 IU, PRN (STRENGTH: 500)
     Route: 042
     Dates: start: 202211
  2. AFSTYLA ANTIHEMOPHILIC FACTOR (RECOMBINANT), SINGLE CHAIN [Suspect]
     Active Substance: LONOCTOCOG ALFA
     Indication: Factor VIII deficiency
     Dosage: 5200 IU, PRN (STRENGTH: 500)
     Route: 042
     Dates: start: 202211
  3. AFSTYLA ANTIHEMOPHILIC FACTOR (RECOMBINANT), SINGLE CHAIN [Suspect]
     Active Substance: LONOCTOCOG ALFA
     Indication: Prophylaxis
     Dosage: 5200 UNK, PRN (STRENGTH: 2000)
     Route: 042
     Dates: start: 202211
  4. AFSTYLA ANTIHEMOPHILIC FACTOR (RECOMBINANT), SINGLE CHAIN [Suspect]
     Active Substance: LONOCTOCOG ALFA
     Indication: Prophylaxis
     Dosage: 5200 UNK, PRN (STRENGTH: 2000)
     Route: 042
     Dates: start: 202211
  5. AFSTYLA ANTIHEMOPHILIC FACTOR (RECOMBINANT), SINGLE CHAIN [Suspect]
     Active Substance: LONOCTOCOG ALFA
     Dosage: 3120 IU 3 TIMES A WEEK/PRN (STRENGTH: 2000)
     Route: 042
     Dates: start: 202211
  6. AFSTYLA ANTIHEMOPHILIC FACTOR (RECOMBINANT), SINGLE CHAIN [Suspect]
     Active Substance: LONOCTOCOG ALFA
     Dosage: 3120 IU 3 TIMES A WEEK/PRN (STRENGTH: 2000)
     Route: 042
     Dates: start: 202211
  7. AFSTYLA ANTIHEMOPHILIC FACTOR (RECOMBINANT), SINGLE CHAIN [Suspect]
     Active Substance: LONOCTOCOG ALFA
     Dosage: 3120 IU 3 TIMES A WEEK/PRN (STRENGTH: 1000)
     Route: 042
     Dates: start: 202211
  8. AFSTYLA ANTIHEMOPHILIC FACTOR (RECOMBINANT), SINGLE CHAIN [Suspect]
     Active Substance: LONOCTOCOG ALFA
     Dosage: 3120 IU 3 TIMES A WEEK/PRN (STRENGTH: 1000)
     Route: 042
     Dates: start: 202211
  9. AFSTYLA ANTIHEMOPHILIC FACTOR (RECOMBINANT), SINGLE CHAIN [Suspect]
     Active Substance: LONOCTOCOG ALFA
     Dosage: 1120 IU
     Route: 042
     Dates: start: 20250428
  10. AFSTYLA ANTIHEMOPHILIC FACTOR (RECOMBINANT), SINGLE CHAIN [Suspect]
     Active Substance: LONOCTOCOG ALFA
     Dosage: 1120 IU
     Route: 042
     Dates: start: 20250428

REACTIONS (3)
  - Haemarthrosis [Recovered/Resolved]
  - Tooth infection [Unknown]
  - Haemarthrosis [Unknown]

NARRATIVE: CASE EVENT DATE: 20250309
